FAERS Safety Report 12480160 (Version 1)
Quarter: 2016Q2

REPORT INFORMATION
  Report Type: Report from Study
  Country: PE (occurrence: PE)
  Receive Date: 20160620
  Receipt Date: 20160620
  Transmission Date: 20160815
  Serious: Yes (Other)
  Sender: FDA-Public Use
  Company Number: PE-EMD SERONO-8089457

PATIENT
  Age: 12 Year
  Sex: Female

DRUGS (1)
  1. SAIZEN [Suspect]
     Active Substance: SOMATROPIN
     Indication: GROWTH HORMONE DEFICIENCY
     Dates: start: 20151116

REACTIONS (3)
  - Acral overgrowth [Unknown]
  - Melanocytic naevus [Unknown]
  - Skin discolouration [Unknown]

NARRATIVE: CASE EVENT DATE: 201602
